FAERS Safety Report 9177254 (Version 3)
Quarter: 2013Q3

REPORT INFORMATION
  Report Type: Spontaneous
  Country: DE (occurrence: DE)
  Receive Date: 20130321
  Receipt Date: 20130708
  Transmission Date: 20140515
  Serious: Yes (Death)
  Sender: FDA-Public Use
  Company Number: DE-TEVA-391796GER

PATIENT
  Age: 49 Year
  Sex: Male
  Weight: 71 kg

DRUGS (1)
  1. MIRTAZAPIN-RATIOPHARM 15 MG FILMTABLETTEN [Suspect]
     Indication: DEPRESSION
     Dosage: 15 MILLIGRAM DAILY;
     Route: 048
     Dates: start: 20121211, end: 20121212

REACTIONS (1)
  - Completed suicide [Fatal]
